FAERS Safety Report 17060907 (Version 1)
Quarter: 2019Q4

REPORT INFORMATION
  Report Type: Spontaneous
  Country: US (occurrence: US)
  Receive Date: 20191121
  Receipt Date: 20191121
  Transmission Date: 20200122
  Serious: Yes (Other)
  Sender: FDA-Public Use
  Company Number: NVSC2019US041975

PATIENT
  Age: 74 Year
  Sex: Male

DRUGS (10)
  1. DEXAMETHASONE. [Suspect]
     Active Substance: DEXAMETHASONE
     Dosage: 40 MG, CYCLIC (DAY 3)
     Route: 042
  2. CYTARABINE. [Suspect]
     Active Substance: CYTARABINE
     Indication: B-CELL LYMPHOMA
     Dosage: 2 G/M2, CYCLIC (DAY 2)
     Route: 065
  3. DEXAMETHASONE. [Suspect]
     Active Substance: DEXAMETHASONE
     Dosage: UNK
     Route: 047
  4. OXALIPLATIN. [Suspect]
     Active Substance: OXALIPLATIN
     Indication: B-CELL LYMPHOMA
     Dosage: 2 G/M2, CYCLIC (DAY 1)
     Route: 042
  5. DEXAMETHASONE. [Suspect]
     Active Substance: DEXAMETHASONE
     Indication: B-CELL LYMPHOMA
     Dosage: 40 MG, CYCLIC (DAY 1)
     Route: 042
  6. ONDANSETRON [Concomitant]
     Active Substance: ONDANSETRON
     Indication: SUPPORTIVE CARE
     Dosage: UNK
     Route: 051
  7. RITUXIMAB. [Suspect]
     Active Substance: RITUXIMAB
     Indication: B-CELL LYMPHOMA
     Dosage: 375 MG/M2, CYCLIC (DAY 1)
     Route: 065
  8. CYTARABINE. [Suspect]
     Active Substance: CYTARABINE
     Dosage: 2 G/M2, CYCLIC (DAY 3)
     Route: 065
  9. DEXAMETHASONE. [Suspect]
     Active Substance: DEXAMETHASONE
     Dosage: 40 MG, CYCLIC (DAY 2)
     Route: 042
  10. DEXAMETHASONE. [Suspect]
     Active Substance: DEXAMETHASONE
     Dosage: 40 UNK, CYCLIC (DAY 4)
     Route: 048

REACTIONS (9)
  - Neurotoxicity [Unknown]
  - Conjunctivitis [Unknown]
  - Insomnia [Unknown]
  - Product use in unapproved indication [Unknown]
  - Neuropathy peripheral [Unknown]
  - Bone marrow failure [Unknown]
  - Hyperglycaemia [Unknown]
  - Infusion related reaction [Unknown]
  - Impaired healing [Unknown]
